FAERS Safety Report 9899688 (Version 2)
Quarter: 2014Q1

REPORT INFORMATION
  Report Type: Spontaneous
  Country: US (occurrence: US)
  Receive Date: 20140214
  Receipt Date: 20140214
  Transmission Date: 20141002
  Serious: No
  Sender: FDA-Public Use
  Company Number: US-GILEAD-2011-0048061

PATIENT
  Age: 41 Year
  Sex: Female

DRUGS (3)
  1. LETAIRIS [Suspect]
     Indication: PRODUCT USED FOR UNKNOWN INDICATION
     Dosage: 10 MG,
     Route: 048
     Dates: start: 20090623
  2. TYVASO [Concomitant]
  3. REVATIO [Concomitant]

REACTIONS (6)
  - Cough [Unknown]
  - Chest pain [Unknown]
  - Lung disorder [Unknown]
  - Malaise [Unknown]
  - Throat irritation [Unknown]
  - Oropharyngeal pain [Unknown]
